FAERS Safety Report 23364512 (Version 1)
Quarter: 2024Q1

REPORT INFORMATION
  Report Type: Spontaneous
  Country: TR (occurrence: TR)
  Receive Date: 20240104
  Receipt Date: 20240104
  Transmission Date: 20240410
  Serious: Yes (Other)
  Sender: FDA-Public Use
  Company Number: TR-ABBOTT-2023A-1375453

PATIENT
  Sex: Male
  Weight: 75 kg

DRUGS (1)
  1. FENOFIBRATE [Suspect]
     Active Substance: FENOFIBRATE
     Indication: Blood triglycerides
     Route: 048
     Dates: start: 20221212

REACTIONS (3)
  - Renal failure [Recovered/Resolved]
  - Blood creatine abnormal [Recovered/Resolved with Sequelae]
  - Glomerular filtration rate abnormal [Recovered/Resolved with Sequelae]
